FAERS Safety Report 14677811 (Version 1)
Quarter: 2018Q1

REPORT INFORMATION
  Report Type: Report from Study
  Country: None (occurrence: US)
  Receive Date: 20180326
  Receipt Date: 20180326
  Transmission Date: 20180509
  Serious: Yes (Other)
  Sender: FDA-Public Use
  Company Number: US-ABBVIE-17K-163-2195071-00

PATIENT
  Sex: Female

DRUGS (1)
  1. HUMIRA [Suspect]
     Active Substance: ADALIMUMAB
     Indication: RHEUMATOID ARTHRITIS
     Route: 058

REACTIONS (6)
  - Blood iron decreased [Recovering/Resolving]
  - Urinary tract infection [Recovering/Resolving]
  - Oesophageal obstruction [Unknown]
  - Gastric disorder [Recovering/Resolving]
  - Immunodeficiency [Unknown]
  - Sinusitis [Recovering/Resolving]
